FAERS Safety Report 7910103-2 (Version None)
Quarter: 2011Q4

REPORT INFORMATION
  Report Type: 
  Country: None (occurrence: None)
  Receive Date: 20111111
  Receipt Date: 20111026
  Transmission Date: 20120403
  Serious: Yes (Death, Hospitalization)
  Sender: FDA-Public Use
  Company Number: DE-ROCHE-1010597

PATIENT
  Sex: Male

DRUGS (2)
  1. OXALIPLATIN [Suspect]
     Indication: RECTAL CANCER
     Dosage: DOSE: D1 OF 3 WEEK CYCLE; LAST DOSE PRIOR TO SAE: 10 OCT 2011
     Route: 042
     Dates: start: 20110523
  2. XELODA [Suspect]
     Indication: RECTAL CANCER
     Dosage: DOSE: D1-D15 OF 3 WEEK CYCLE; LAST DOSE PRIOR TO SAE: UNKNOWN DATE IN OCT 2011
     Route: 048
     Dates: start: 20110523

REACTIONS (2)
  - SEPTIC SHOCK [None]
  - MULTI-ORGAN FAILURE [None]
